FAERS Safety Report 13227775 (Version 1)
Quarter: 2017Q1

REPORT INFORMATION
  Report Type: Report from Study
  Country: BR (occurrence: BR)
  Receive Date: 20170213
  Receipt Date: 20170213
  Transmission Date: 20170428
  Serious: Yes (Death, Hospitalization)
  Sender: FDA-Public Use
  Company Number: PHHY2017BR022211

PATIENT
  Sex: Female

DRUGS (1)
  1. EXELON PATCH [Suspect]
     Active Substance: RIVASTIGMINE
     Indication: PARKINSON^S DISEASE
     Dosage: 13.3 MG, QD (PATCH 15 (CM2) )
     Route: 062

REACTIONS (3)
  - Cardiopulmonary failure [Fatal]
  - Lumbar vertebral fracture [Unknown]
  - Lung infection [Fatal]
